FAERS Safety Report 5882532-2 (Version None)
Quarter: 2008Q3

REPORT INFORMATION
  Report Type: 
  Country: None (occurrence: None)
  Receive Date: 20080913
  Receipt Date: 20080806
  Transmission Date: 20090109
  Serious: No
  Sender: FDA-Public Use
  Company Number: US-ABBOTT-08P-163-0469367-00

PATIENT
  Sex: Female
  Weight: 77.18 kg

DRUGS (8)
  1. HUMIRA [Suspect]
     Indication: CROHN'S DISEASE
     Route: 050
  2. ABALIBE [Concomitant]
     Indication: HYPERTENSION
     Dosage: 300/25 MG DAILY
     Route: 048
     Dates: start: 20070101
  3. MESALAMINE [Concomitant]
     Indication: CROHN'S DISEASE
     Dosage: 400 MG, 2 PILLS, THREE TIMES DAILY
     Route: 048
     Dates: start: 20050101
  4. ISOSORBIDE MONONITRATE [Concomitant]
     Indication: HYPERTENSION
     Dosage: 60 MG DAILY
     Route: 048
     Dates: start: 20070101
  5. VERAPAMIL [Concomitant]
     Indication: HYPERTENSION
     Route: 048
     Dates: start: 20070101
  6. RABEPRAZOLE SODIUM [Concomitant]
     Indication: CROHN'S DISEASE
     Route: 048
     Dates: start: 20070101
  7. ATENOLOL [Concomitant]
     Indication: HYPERTENSION
     Route: 048
     Dates: start: 20070101
  8. ACETYLSALICYLIC ACID SRT [Concomitant]
     Indication: HYPERTENSION
     Route: 048
     Dates: start: 20050101

REACTIONS (1)
  - PROCEDURAL COMPLICATION [None]
